FAERS Safety Report 7210559-7 (Version None)
Quarter: 2011Q1

REPORT INFORMATION
  Report Type: 
  Country: None (occurrence: None)
  Receive Date: 20110105
  Receipt Date: 20101223
  Transmission Date: 20110831
  Serious: Yes (Other)
  Sender: FDA-Public Use
  Company Number: PHHY2010AU85678

PATIENT
  Sex: Male

DRUGS (2)
  1. CLOZARIL [Suspect]
     Indication: SCHIZOPHRENIA, PARANOID TYPE
     Dosage: 450 MG, QD
     Dates: start: 20100901
  2. CLOZARIL [Suspect]
     Dosage: 500 MG, QD

REACTIONS (5)
  - QRS AXIS ABNORMAL [None]
  - ELECTROCARDIOGRAM ABNORMAL [None]
  - BLOOD CREATINE PHOSPHOKINASE INCREASED [None]
  - ALANINE AMINOTRANSFERASE INCREASED [None]
  - SINUS TACHYCARDIA [None]
